FAERS Safety Report 20512334 (Version 1)
Quarter: 2022Q1

REPORT INFORMATION
  Report Type: Spontaneous
  Country: US (occurrence: None)
  Receive Date: 20220223
  Receipt Date: 20220223
  Transmission Date: 20220423
  Serious: Yes (Other)
  Sender: FDA-Public Use
  Company Number: None

PATIENT
  Sex: Male
  Weight: 58.95 kg

DRUGS (3)
  1. CAPECITABINE [Suspect]
     Active Substance: CAPECITABINE
     Indication: Breast cancer metastatic
     Dosage: FREQUENCY : TWICE A DAY;?
     Route: 048
     Dates: start: 20210816
  2. GABAPENTIN [Concomitant]
     Active Substance: GABAPENTIN
  3. oxycodone 10 mg [Concomitant]

REACTIONS (3)
  - Neuropathy peripheral [None]
  - Gait disturbance [None]
  - Confusional state [None]
